FAERS Safety Report 4504543-1 (Version None)
Quarter: 2004Q4

REPORT INFORMATION
  Report Type: 
  Country: None (occurrence: None)
  Receive Date: 20041116
  Receipt Date: 20040902
  Transmission Date: 20050328
  Serious: No
  Sender: FDA-Public Use
  Company Number: A01200404284

PATIENT
  Age: 64 Year
  Sex: Female

DRUGS (1)
  1. ELOXATIN [Suspect]
     Dosage: INTRAVENOUS NOS
     Route: 042
     Dates: start: 20040831, end: 20040831

REACTIONS (7)
  - CATHETER RELATED COMPLICATION [None]
  - DYSPNOEA [None]
  - ERYTHEMA [None]
  - FACE OEDEMA [None]
  - LOCALISED OEDEMA [None]
  - PYREXIA [None]
  - VENA CAVA THROMBOSIS [None]
